FAERS Safety Report 8842236 (Version 1)
Quarter: 2012Q4

REPORT INFORMATION
  Report Type: Spontaneous
  Country: US (occurrence: None)
  Receive Date: 20121015
  Receipt Date: 20121015
  Transmission Date: 20130627
  Serious: Yes (Other)
  Sender: FDA-Public Use
  Company Number: None

PATIENT
  Age: 33 Year
  Sex: Male
  Weight: 113.4 kg

DRUGS (1)
  1. FLUOXETINE 20 MG TABLETS [Suspect]
     Indication: OBSESSIVE-COMPULSIVE DISORDER
     Dosage: 40 1x Day po
     Route: 048
     Dates: start: 20110601, end: 20110806

REACTIONS (3)
  - Weight increased [None]
  - Cerebral thrombosis [None]
  - Vein disorder [None]
